FAERS Safety Report 9528030 (Version 1)
Quarter: 2013Q1

REPORT INFORMATION
  Report Type: Spontaneous
  Country: US (occurrence: None)
  Receive Date: 20130313
  Receipt Date: 20130313
  Transmission Date: 20140127
  Serious: No
  Sender: FDA-Public Use
  Company Number: 1000029230

PATIENT
  Age: 57 Year
  Sex: Female

DRUGS (5)
  1. SAVELLA [Suspect]
     Indication: FIBROMYALGIA
     Dosage: 12.5 MG (12.5 MG,1IN 1 D),ORAL
     Route: 048
     Dates: start: 20120309
  2. TRANDOLAPRIL (TRANDOLAPRIL) (TRANDOLAPRIL) [Concomitant]
  3. PROMETRIUM (PROGESTERONE) (PROGESTERONE) [Concomitant]
  4. CYCLOBENZAPRINE (CYCLOBENZAPRINE) (CYCLOBENZAPRINE) [Concomitant]
  5. NAPROXEN (NAPROXEN) (NAPROXEN) [Concomitant]

REACTIONS (2)
  - Diarrhoea [None]
  - Flatulence [None]
